FAERS Safety Report 6017994-3 (Version None)
Quarter: 2008Q4

REPORT INFORMATION
  Report Type: 
  Country: None (occurrence: None)
  Receive Date: 20081223
  Receipt Date: 20081219
  Transmission Date: 20090506
  Serious: Yes (Death)
  Sender: FDA-Public Use
  Company Number: B0521175A

PATIENT
  Age: 76 Year
  Sex: Female
  Weight: 70 kg

DRUGS (8)
  1. ARIXTRA [Suspect]
     Indication: THROMBOSIS PROPHYLAXIS
     Dosage: 1.5MG PER DAY
     Route: 058
     Dates: start: 20080328, end: 20080408
  2. SOLITA-T NO 3 [Concomitant]
     Route: 042
     Dates: start: 20080326, end: 20080327
  3. TRANSAMIN [Concomitant]
     Route: 042
     Dates: start: 20080326, end: 20080327
  4. UNKNOWN DRUG [Concomitant]
     Indication: PROPHYLAXIS
     Dosage: .25G PER DAY
     Route: 042
     Dates: start: 20080326, end: 20080328
  5. FLUMARIN [Concomitant]
     Indication: INFECTION PROPHYLAXIS
     Dosage: 2G PER DAY
     Route: 042
     Dates: start: 20080326, end: 20080331
  6. LORCAM [Concomitant]
     Indication: ANALGESIA
     Route: 042
     Dates: start: 20080327, end: 20080407
  7. MUCOSTA [Concomitant]
     Indication: ANALGESIA
     Route: 042
     Dates: start: 20080327, end: 20080407
  8. CEFDINIR [Concomitant]
     Indication: INFECTION PROPHYLAXIS
     Route: 042
     Dates: start: 20080401, end: 20080405

REACTIONS (1)
  - CEREBRAL HAEMORRHAGE [None]
